FAERS Safety Report 11499764 (Version 1)
Quarter: 2015Q3

REPORT INFORMATION
  Report Type: Spontaneous
  Country: US (occurrence: US)
  Receive Date: 20150914
  Receipt Date: 20150914
  Transmission Date: 20151125
  Serious: No
  Sender: FDA-Public Use
  Company Number: US-TEVA-591860ACC

PATIENT
  Sex: Female
  Weight: 56.3 kg

DRUGS (2)
  1. PARAGARD T 380A [Suspect]
     Active Substance: COPPER
     Route: 015
  2. PARAGARD T 380A [Suspect]
     Active Substance: COPPER
     Indication: CONTRACEPTION
     Route: 015
     Dates: start: 20150730, end: 20150810

REACTIONS (3)
  - Device breakage [Recovered/Resolved]
  - Medical device complication [Recovered/Resolved]
  - Expired device used [Unknown]
